FAERS Safety Report 9515095 (Version 1)
Quarter: 2013Q1

REPORT INFORMATION
  Report Type: Spontaneous
  Country: US (occurrence: None)
  Receive Date: 20130305
  Receipt Date: 20130305
  Transmission Date: 20140127
  Serious: Yes (Other)
  Sender: FDA-Public Use
  Company Number: 163-21880-12101774

PATIENT
  Age: 62 Year
  Sex: Male
  Weight: 83.92 kg

DRUGS (16)
  1. REVLIMID [Suspect]
     Indication: PLASMA CELL MYELOMA
     Dosage: 10 MG, 1 IN 1 D, PO
     Route: 048
     Dates: start: 201003
  2. ASA (ACETYLSALICYLIC ACID) (UNKNOWN) [Concomitant]
  3. ATIVAN (LORAZEPAM) (UNKNOWN) [Concomitant]
  4. BUMEX (BUMETANIDE) (UNKNOWN) [Concomitant]
  5. CALCITROL (CALCITROL) (UNKNOWN) [Concomitant]
  6. CORDARONE (AMIODARONE HYDROCHLORIDE) (UNKNOWN) [Concomitant]
  7. COREG (CARVEDILOL) (UNKNOWN) [Concomitant]
  8. ZOCOR (SIMVASTATIN) (UNKNOWN) [Concomitant]
  9. RENAL SOFTGEL (SEVELAMER HYDROCHLORIDE) (UNKNOWN) [Concomitant]
  10. PROCHLORPER (PROCHLORPERAZINE) (UNKNOWN) [Concomitant]
  11. EFFEXOR (VENLAFAXINE HYDROCHLORIDE) (UNKNOWN) [Concomitant]
  12. PHOSLO (CALCIUM ACETATE) (UNKNOWN) [Concomitant]
  13. PEPCID (FAMOTIDINE) (UNKNOWN) [Concomitant]
  14. LISINOPRIL (LISINOPRIL) (UNKNOWN) [Concomitant]
  15. DEXAMEHTASONE (DEXAMEHTASONE) (UNKNOWN) [Concomitant]
  16. COUMADIN (WARFARIN SODIUM) (UNKNOWN) [Concomitant]

REACTIONS (1)
  - Renal impairment [None]
